FAERS Safety Report 11086859 (Version 1)
Quarter: 2015Q2

REPORT INFORMATION
  Report Type: Spontaneous
  Country: BE (occurrence: None)
  Receive Date: 20150430
  Receipt Date: 20150430
  Transmission Date: 20150821
  Serious: Yes (Death, Other)
  Sender: FDA-Public Use
  Company Number: FK201501905

PATIENT
  Age: 76 Year
  Sex: Female

DRUGS (1)
  1. GANCICLOVIR. [Suspect]
     Active Substance: GANCICLOVIR
     Indication: PNEUMONIA CYTOMEGALOVIRAL
     Dosage: 1 IN 1 D
     Route: 042

REACTIONS (7)
  - Blood ketone body [None]
  - Lactic acidosis [None]
  - Respiratory distress [None]
  - Hypoglycaemia [None]
  - Circulatory collapse [None]
  - Hyperlactacidaemia [None]
  - Coma [None]
